FAERS Safety Report 9361121 (Version 2)
Quarter: 2013Q3

REPORT INFORMATION
  Report Type: Spontaneous
  Country: FR (occurrence: FR)
  Receive Date: 20130621
  Receipt Date: 20130815
  Transmission Date: 20140515
  Serious: Yes (Death)
  Sender: FDA-Public Use
  Company Number: FR-TEVA-411934ISR

PATIENT
  Age: 80 Year
  Sex: Male
  Weight: 70 kg

DRUGS (7)
  1. FUROSEMIDE TEVA 40 MG [Suspect]
     Indication: PULMONARY OEDEMA
     Dosage: 40 MILLIGRAM DAILY;
     Route: 048
     Dates: start: 20130528, end: 20130528
  2. SINEMET [Concomitant]
     Route: 048
  3. PREVISCAN [Concomitant]
     Route: 048
  4. PRAVASTATINE [Concomitant]
     Route: 048
  5. LOPRESSOR [Concomitant]
     Route: 048
  6. EUPANTOL [Concomitant]
     Route: 048
  7. DIFFU K [Concomitant]
     Route: 048

REACTIONS (7)
  - Ischaemic stroke [Fatal]
  - Somnolence [Recovered/Resolved]
  - Feeling abnormal [Unknown]
  - Eating disorder [Unknown]
  - Urine output decreased [Unknown]
  - Oliguria [Unknown]
  - Asthenia [Unknown]
